FAERS Safety Report 6727163-7 (Version None)
Quarter: 2010Q2

REPORT INFORMATION
  Report Type: 
  Country: None (occurrence: None)
  Receive Date: 20100517
  Receipt Date: 20100225
  Transmission Date: 20101027
  Serious: Yes (Death)
  Sender: FDA-Public Use
  Company Number: DE-GENZYME-CERZ-1000996

PATIENT

DRUGS (2)
  1. CEREZYME [Suspect]
     Indication: GAUCHER'S DISEASE
     Dosage: 800 U, Q2W
     Route: 042
     Dates: start: 20080912, end: 20100211
  2. MIGLUSTAT [Suspect]
     Indication: GAUCHER'S DISEASE
     Dosage: 33 MG, QDX3
     Route: 048
     Dates: start: 20090801, end: 20100211

REACTIONS (3)
  - ASPIRATION [None]
  - BRONCHITIS [None]
  - PNEUMONIA [None]
